FAERS Safety Report 5368397-6 (Version None)
Quarter: 2007Q2

REPORT INFORMATION
  Report Type: 
  Country: None (occurrence: None)
  Receive Date: 20070621
  Receipt Date: 20070606
  Transmission Date: 20071010
  Serious: Yes (Congenital Anomaly)
  Sender: FDA-Public Use
  Company Number: B0474898A

PATIENT
  Sex: 0

DRUGS (3)
  1. METHADONE HCL [Suspect]
     Dosage: TRANSPLACENTARY
     Route: 064
  2. CHLORPROMAZINE HYDROCHLORIDE [Suspect]
     Dosage: TRANSPLACENTARY
     Route: 064
  3. DIAMORPHINE HYDROCHLORIDE INJECTION (DIAMORPHINE HYDROCHLORIDE) [Suspect]
     Dosage: TRANSPLACENTARY
     Route: 064

REACTIONS (8)
  - CONGENITAL ANOMALY [None]
  - CONGENITAL NYSTAGMUS [None]
  - DEVELOPMENTAL DELAY [None]
  - DRUG EXPOSURE DURING PREGNANCY [None]
  - DRUG WITHDRAWAL SYNDROME [None]
  - MICROCEPHALY [None]
  - POSTURE ABNORMAL [None]
  - VISUAL ACUITY REDUCED [None]
